FAERS Safety Report 16629890 (Version 1)
Quarter: 2019Q3

REPORT INFORMATION
  Report Type: Spontaneous
  Country: US (occurrence: US)
  Receive Date: 20190612
  Receipt Date: 20190612
  Transmission Date: 20191004
  Serious: Yes (Hospitalization)
  Sender: FDA-Public Use
  Company Number: None

PATIENT
  Age: 62 Year
  Sex: Female
  Weight: 73 kg

DRUGS (1)
  1. ASPIRIN. [Suspect]
     Active Substance: ASPIRIN
     Dates: end: 20181118

REACTIONS (13)
  - Pneumonia [None]
  - Ammonia increased [None]
  - Mental status changes [None]
  - Pulmonary mass [None]
  - Pulmonary fibrosis [None]
  - Pleural effusion [None]
  - Septic shock [None]
  - Lung infiltration [None]
  - Chronic obstructive pulmonary disease [None]
  - Blood pressure decreased [None]
  - Anaemia [None]
  - Hypokalaemia [None]
  - Hepatic cirrhosis [None]

NARRATIVE: CASE EVENT DATE: 20181119
